FAERS Safety Report 19997213 (Version 1)
Quarter: 2021Q4

REPORT INFORMATION
  Report Type: Spontaneous
  Country: CA (occurrence: CA)
  Receive Date: 20211026
  Receipt Date: 20211026
  Transmission Date: 20220303
  Serious: Yes (Other)
  Sender: FDA-Public Use
  Company Number: CA-PFIZER INC-2021540155

PATIENT
  Age: 51 Year
  Sex: Male

DRUGS (3)
  1. XELJANZ [Suspect]
     Active Substance: TOFACITINIB CITRATE
     Indication: Colitis ulcerative
     Dosage: 10 MG, 2X/DAY
     Route: 048
     Dates: start: 20210315, end: 2021
  2. XELJANZ [Suspect]
     Active Substance: TOFACITINIB CITRATE
     Dosage: 5 MG, 2X/DAY
     Route: 048
     Dates: start: 2021
  3. PREDNISONE [Concomitant]
     Active Substance: PREDNISONE
     Dosage: UNK

REACTIONS (10)
  - Thrombosis [Unknown]
  - Condition aggravated [Not Recovered/Not Resolved]
  - Hangnail [Recovered/Resolved]
  - Nail infection [Unknown]
  - Glossodynia [Recovering/Resolving]
  - Swollen tongue [Recovering/Resolving]
  - Fatigue [Unknown]
  - Headache [Unknown]
  - Oropharyngeal pain [Unknown]
  - Oral discomfort [Unknown]
